FAERS Safety Report 23752429 (Version 3)
Quarter: 2024Q2

REPORT INFORMATION
  Report Type: Spontaneous
  Country: GB (occurrence: GB)
  Receive Date: 20240417
  Receipt Date: 20240515
  Transmission Date: 20240716
  Serious: Yes (Other)
  Sender: FDA-Public Use
  Company Number: GB-VERTEX PHARMACEUTICALS-2024-006599

PATIENT
  Age: 23 Year
  Sex: Male

DRUGS (7)
  1. ELEXACAFTOR\IVACAFTOR\TEZACAFTOR [Suspect]
     Active Substance: ELEXACAFTOR\IVACAFTOR\TEZACAFTOR
     Indication: Cystic fibrosis
     Dosage: 2 TABS IN AM
     Route: 048
     Dates: start: 20211011
  2. KALYDECO [Suspect]
     Active Substance: IVACAFTOR
     Indication: Cystic fibrosis
     Dosage: 1 TAB IN PM
     Route: 048
     Dates: start: 20211011
  3. CREON [Concomitant]
     Active Substance: PANCRELIPASE AMYLASE\PANCRELIPASE LIPASE\PANCRELIPASE PROTEASE
  4. DORNASE ALFA [Concomitant]
     Active Substance: DORNASE ALFA
  5. ALBUTEROL [Concomitant]
     Active Substance: ALBUTEROL
  6. URSODIOL [Concomitant]
     Active Substance: URSODIOL
  7. PARAVIT CF [Concomitant]
     Dosage: 2 IN AM

REACTIONS (1)
  - Vitamin A increased [Recovered/Resolved]

NARRATIVE: CASE EVENT DATE: 20220301
